FAERS Safety Report 5328141-5 (Version None)
Quarter: 2007Q2

REPORT INFORMATION
  Report Type: 
  Country: None (occurrence: None)
  Receive Date: 20070514
  Receipt Date: 20070427
  Transmission Date: 20071010
  Serious: Yes (Other)
  Sender: FDA-Public Use
  Company Number: US020003

PATIENT
  Age: 33 Year
  Sex: Female

DRUGS (1)
  1. ACTIQ [Suspect]
     Dosage: ONCE BUCCAL
     Route: 002
     Dates: start: 20061103

REACTIONS (6)
  - AGITATION [None]
  - HYPERTENSION [None]
  - IRRITABILITY [None]
  - LETHARGY [None]
  - SOMNOLENCE [None]
  - SUICIDE ATTEMPT [None]
